FAERS Safety Report 11327392 (Version 5)
Quarter: 2016Q3

REPORT INFORMATION
  Report Type: Spontaneous
  Country: US (occurrence: US)
  Receive Date: 20150731
  Receipt Date: 20160808
  Transmission Date: 20161109
  Serious: Yes (Hospitalization, Other)
  Sender: FDA-Public Use
  Company Number: US-PFIZER INC-2015255033

PATIENT
  Age: 75 Year
  Sex: Female

DRUGS (25)
  1. VITAMIN D [Concomitant]
     Active Substance: CHOLECALCIFEROL
     Dosage: 50000 IU QD
     Dates: start: 2012
  2. BUTALBITAL, ACETAMINOPHEN, AND CAFFEINE [Concomitant]
     Active Substance: ACETAMINOPHEN\BUTALBITAL\CAFFEINE
     Dosage: PRN
  3. NYSTATIN. [Concomitant]
     Active Substance: NYSTATIN
     Dosage: 10000 U PER/ML QID
     Dates: start: 2015
  4. SILVER SULFADIAZIN [Concomitant]
     Active Substance: SILVER SULFADIAZINE
     Dosage: 1 %, UNK
     Dates: start: 201507
  5. MOMETASONE [Concomitant]
     Active Substance: MOMETASONE
     Dosage: 50 MCG QD
  6. DHEA [Concomitant]
     Active Substance: PRASTERONE
     Dosage: 25-50 MG QD
     Dates: start: 2010
  7. PATANASE [Concomitant]
     Active Substance: OLOPATADINE HYDROCHLORIDE
     Indication: SHORT-BOWEL SYNDROME
     Dosage: 685 MCG
     Dates: start: 2015
  8. WOMEN^S 1-A DAY 50+ [Concomitant]
     Dosage: QD
     Dates: start: 2012
  9. LORATADINE. [Concomitant]
     Active Substance: LORATADINE
     Dosage: 10 MG QD
     Dates: start: 2015
  10. MUCINEX [Concomitant]
     Active Substance: GUAIFENESIN
     Dosage: PRN
  11. VITAMIN D [Concomitant]
     Active Substance: CHOLECALCIFEROL
     Dosage: 1000 QD
     Dates: start: 2012
  12. CALCIUM 600 PLUS VITAMIN D3 [Concomitant]
     Dosage: BID
     Dates: start: 2012
  13. SUPER B COMPLEX [Concomitant]
     Active Substance: CYANOCOBALAMIN\DEXPANTHENOL\NIACINAMIDE\PYRIDOXINE HYDROCHLORIDE\RIBOFLAVIN 5^-PHOSPHATE SODIUM\THIAMINE HYDROCHLORIDE\VITAMIN B COMPLEX
     Dosage: UNK
     Dates: start: 2015
  14. ZYRTEC [Concomitant]
     Active Substance: CETIRIZINE HYDROCHLORIDE
     Dosage: 10 MG BID
     Dates: start: 2015
  15. DIAZEPAM. [Concomitant]
     Active Substance: DIAZEPAM
     Dosage: 5 MG PRN
  16. VITAMIN C [Concomitant]
     Active Substance: ASCORBIC ACID
     Dosage: 500 MG BID
  17. CELEBREX [Suspect]
     Active Substance: CELECOXIB
     Indication: PAIN
  18. PREDNISONE. [Concomitant]
     Active Substance: PREDNISONE
     Indication: SHORT-BOWEL SYNDROME
     Dosage: 40 MG QD
     Dates: start: 2015
  19. ACIPHEX [Concomitant]
     Active Substance: RABEPRAZOLE SODIUM
     Dosage: 20 MG BID
  20. AZELASTINE [Concomitant]
     Active Substance: AZELASTINE
     Indication: SHORT-BOWEL SYNDROME
     Dosage: 137 MCG
     Dates: start: 2015
  21. MELATONIN [Concomitant]
     Active Substance: MELATONIN
     Dosage: PRN
  22. ALBUTEROL. [Concomitant]
     Active Substance: ALBUTEROL
     Dosage: 2 PUFFS PRN
     Route: 055
  23. CELEBREX [Suspect]
     Active Substance: CELECOXIB
     Indication: COMPLEX REGIONAL PAIN SYNDROME
     Dosage: 200 MG BID
     Dates: start: 2001
  24. TEMAZEPAM. [Concomitant]
     Active Substance: TEMAZEPAM
     Dosage: 15-30 MG
  25. BACLOFEN. [Concomitant]
     Active Substance: BACLOFEN
     Dosage: UNK

REACTIONS (1)
  - Respiratory arrest [Not Recovered/Not Resolved]

NARRATIVE: CASE EVENT DATE: 2015
